FAERS Safety Report 21378544 (Version 1)
Quarter: 2022Q3

REPORT INFORMATION
  Report Type: Spontaneous
  Country: FR (occurrence: FR)
  Receive Date: 20220927
  Receipt Date: 20220927
  Transmission Date: 20221026
  Serious: Yes (Other)
  Sender: FDA-Public Use
  Company Number: FR-AFSSAPS-LM20222646

PATIENT
  Age: 74 Year
  Sex: Male

DRUGS (7)
  1. LEVOFLOXACIN [Suspect]
     Active Substance: LEVOFLOXACIN
     Indication: Lung disorder
     Dosage: 500 MILLIGRAM, ONCE A DAY
     Route: 048
     Dates: start: 20220629, end: 20220706
  2. AUGMENTIN [Suspect]
     Active Substance: AMOXICILLIN\CLAVULANATE POTASSIUM
     Indication: Lung disorder
     Dosage: 3 GRAM, ONCE A DAY
     Route: 048
     Dates: start: 20220629, end: 20220704
  3. AUGMENTIN [Suspect]
     Active Substance: AMOXICILLIN\CLAVULANATE POTASSIUM
     Dosage: UNK (1.5 D OF TTT)
     Route: 048
  4. RUXOLITINIB [Concomitant]
     Active Substance: RUXOLITINIB
     Indication: Product used for unknown indication
     Dosage: UNK
     Route: 065
  5. ESOMEPRAZOLE [Concomitant]
     Active Substance: ESOMEPRAZOLE
     Indication: Product used for unknown indication
     Dosage: UNK
     Route: 065
  6. Previscan [Concomitant]
     Indication: Product used for unknown indication
     Dosage: UNK
     Route: 065
  7. TOVIAZ [Concomitant]
     Active Substance: FESOTERODINE FUMARATE
     Indication: Product used for unknown indication
     Dosage: UNK
     Route: 065

REACTIONS (2)
  - Hepatic cytolysis [Recovered/Resolved]
  - Cholestasis [Recovered/Resolved]

NARRATIVE: CASE EVENT DATE: 20220705
